FAERS Safety Report 8283460-8 (Version None)
Quarter: 2012Q2

REPORT INFORMATION
  Report Type: 
  Country: None (occurrence: None)
  Receive Date: 20120413
  Receipt Date: 20120409
  Transmission Date: 20120825
  Serious: Yes (Other)
  Sender: FDA-Public Use
  Company Number: US-ROCHE-783679

PATIENT
  Sex: Male
  Weight: 78.996 kg

DRUGS (1)
  1. ACCUTANE [Suspect]
     Indication: PRODUCT USED FOR UNKNOWN INDICATION
     Route: 065

REACTIONS (7)
  - CROHN'S DISEASE [None]
  - SUICIDAL IDEATION [None]
  - BIPOLAR DISORDER [None]
  - IRRITABLE BOWEL SYNDROME [None]
  - SMALL INTESTINAL OBSTRUCTION [None]
  - DEPRESSION [None]
  - INFLAMMATORY BOWEL DISEASE [None]
